FAERS Safety Report 21233104 (Version 3)
Quarter: 2022Q4

REPORT INFORMATION
  Report Type: Report from Study
  Country: US (occurrence: US)
  Receive Date: 20220819
  Receipt Date: 20221019
  Transmission Date: 20230113
  Serious: Yes (Other)
  Sender: FDA-Public Use
  Company Number: US-GLAXOSMITHKLINE-US2022104326

PATIENT

DRUGS (8)
  1. NIRAPARIB [Suspect]
     Active Substance: NIRAPARIB
     Indication: Ovarian cancer
     Dosage: 200 MG, QD
     Route: 048
     Dates: start: 20220628, end: 20220721
  2. NIRAPARIB [Suspect]
     Active Substance: NIRAPARIB
     Dosage: 100 MG, QD
     Dates: start: 20220812
  3. COMPAZINE [Concomitant]
     Active Substance: PROCHLORPERAZINE MALEATE
     Indication: Product used for unknown indication
     Dosage: UNK
  4. METFORMIN [Concomitant]
     Active Substance: METFORMIN HYDROCHLORIDE
     Indication: Product used for unknown indication
     Dosage: 500 MG
  5. PLAQUENIL [Concomitant]
     Active Substance: HYDROXYCHLOROQUINE SULFATE
     Indication: Product used for unknown indication
     Dosage: UNK
  6. LOSARTAN [Concomitant]
     Active Substance: LOSARTAN
     Indication: Raynaud^s phenomenon
     Dosage: UNK
  7. OMEPRAZOLE [Concomitant]
     Active Substance: OMEPRAZOLE
     Indication: Product used for unknown indication
     Dosage: UNK
  8. PRAVASTATIN [Concomitant]
     Active Substance: PRAVASTATIN
     Indication: Product used for unknown indication
     Dosage: 10 MG

REACTIONS (16)
  - Haemorrhage [Not Recovered/Not Resolved]
  - Fatigue [Recovering/Resolving]
  - Constipation [Recovered/Resolved]
  - Pruritus [Not Recovered/Not Resolved]
  - Haemoglobin decreased [Unknown]
  - Haematocrit decreased [Not Recovered/Not Resolved]
  - Platelet count decreased [Unknown]
  - Rash [Not Recovered/Not Resolved]
  - Blood urine present [Recovered/Resolved]
  - Increased tendency to bruise [Not Recovered/Not Resolved]
  - Livedo reticularis [Not Recovered/Not Resolved]
  - Blood creatinine increased [Not Recovered/Not Resolved]
  - White blood cell count decreased [Unknown]
  - Laboratory test abnormal [Recovering/Resolving]
  - Dermatitis [Not Recovered/Not Resolved]
  - Off label use [Unknown]

NARRATIVE: CASE EVENT DATE: 20220715
